FAERS Safety Report 21471475 (Version 1)
Quarter: 2022Q4

REPORT INFORMATION
  Report Type: Report from Study
  Country: US (occurrence: US)
  Receive Date: 20221018
  Receipt Date: 20221018
  Transmission Date: 20230112
  Serious: No
  Sender: FDA-Public Use
  Company Number: US-ABBVIE-4151926

PATIENT
  Age: 68 Year
  Sex: Male

DRUGS (11)
  1. IMBRUVICA [Suspect]
     Active Substance: IBRUTINIB
     Indication: Chronic lymphocytic leukaemia
     Dosage: TIME INTERVAL: 0.33333333 DAYS
     Route: 048
     Dates: start: 202207
  2. Acetaminophen Extra Strength Oral T [Concomitant]
     Indication: Product used for unknown indication
  3. Ibuprofen Oral Tablet 200 MG [Concomitant]
     Indication: Product used for unknown indication
  4. levoFLOXacin Oral Tablet 750 MG [Concomitant]
     Indication: Product used for unknown indication
  5. Vitamin D3 Oral Capsule 50 MCG (200 [Concomitant]
     Indication: Product used for unknown indication
     Dosage: DOSAGE: 50 MCG
  6. Potassium Citrate ER Oral Tablet Ex [Concomitant]
     Indication: Product used for unknown indication
  7. Tamsulosin HCl Oral Capsule 0.4 MG [Concomitant]
     Indication: Product used for unknown indication
     Route: 048
  8. VITAMIN B12 [Concomitant]
     Active Substance: CYANOCOBALAMIN
     Indication: Product used for unknown indication
     Dosage: DOSAGE: 500 MCG
     Route: 048
  9. Allopurinol Oral Tablet 100 MG [Concomitant]
     Indication: Product used for unknown indication
  10. Lisinopril Oral Tablet 5 MG [Concomitant]
     Indication: Product used for unknown indication
     Route: 048
  11. Loratadine Oral Tablet 10 MG [Concomitant]
     Indication: Product used for unknown indication
     Route: 048

REACTIONS (1)
  - Pneumonia [Recovering/Resolving]

NARRATIVE: CASE EVENT DATE: 20220922
